FAERS Safety Report 9506477 (Version 1)
Quarter: 2013Q3

REPORT INFORMATION
  Report Type: Spontaneous
  Country: ES (occurrence: ES)
  Receive Date: 20130906
  Receipt Date: 20130906
  Transmission Date: 20140515
  Serious: Yes (Other)
  Sender: FDA-Public Use
  Company Number: PHHY2013ES096500

PATIENT
  Age: 81 Year
  Sex: Female

DRUGS (7)
  1. ZOMETA [Suspect]
     Indication: METASTASES TO BONE
     Dosage: UNK UKN, UNK
  2. FEMARA [Suspect]
     Indication: METASTASES TO BONE
     Dosage: UNK UKN, UNK
  3. AROMASIL [Concomitant]
     Dosage: UNK UKN, UNK
  4. FASLODEX [Concomitant]
     Dosage: UNK UKN, UNK
  5. CAPECITABINE [Concomitant]
     Dosage: UNK UKN, UNK
  6. TAMOXIFEN [Concomitant]
     Dosage: UNK UKN, UNK
  7. PAMIDRONATE [Concomitant]
     Dosage: UNK UKN, UNK

REACTIONS (4)
  - Neoplasm [Unknown]
  - Tumour haemorrhage [Unknown]
  - Metastases to bone [Unknown]
  - Malignant neoplasm progression [Unknown]
